FAERS Safety Report 17219533 (Version 1)
Quarter: 2019Q4

REPORT INFORMATION
  Report Type: Spontaneous
  Country: US (occurrence: US)
  Receive Date: 20191209
  Receipt Date: 20191209
  Transmission Date: 20200122
  Serious: No
  Sender: FDA-Public Use
  Company Number: None

PATIENT
  Age: 26 Year
  Sex: Male

DRUGS (1)
  1. CITALOPRAM [Suspect]
     Active Substance: CITALOPRAM HYDROBROMIDE
     Indication: DEPRESSION
     Dates: start: 20191025, end: 20191026

REACTIONS (9)
  - Musculoskeletal stiffness [None]
  - Nausea [None]
  - Ocular hyperaemia [None]
  - Chest pain [None]
  - Headache [None]
  - Myalgia [None]
  - Vomiting [None]
  - Tachycardia [None]
  - Eye pain [None]

NARRATIVE: CASE EVENT DATE: 20191026
